FAERS Safety Report 24164477 (Version 1)
Quarter: 2024Q3

REPORT INFORMATION
  Report Type: Spontaneous
  Country: US (occurrence: US)
  Receive Date: 20240801
  Receipt Date: 20240801
  Transmission Date: 20241016
  Serious: Yes (Other)
  Sender: NOVARTIS
  Company Number: US-002147023-NVSC2024US155465

PATIENT

DRUGS (1)
  1. KESIMPTA [Suspect]
     Active Substance: OFATUMUMAB
     Indication: Relapsing-remitting multiple sclerosis
     Dosage: UNK
     Route: 065

REACTIONS (10)
  - Spinal cord injury cervical [Unknown]
  - Nerve compression [Unknown]
  - Discomfort [Unknown]
  - Hypoaesthesia [Unknown]
  - Central nervous system lesion [Unknown]
  - Motor dysfunction [Unknown]
  - Diplopia [Unknown]
  - Food poisoning [Unknown]
  - Pain [Recovering/Resolving]
  - Swelling [Unknown]
